FAERS Safety Report 9909418 (Version 3)
Quarter: 2015Q3

REPORT INFORMATION
  Report Type: Spontaneous
  Country: US (occurrence: US)
  Receive Date: 20140219
  Receipt Date: 20150811
  Transmission Date: 20151125
  Serious: No
  Sender: FDA-Public Use
  Company Number: US-GILEAD-2012-0052664

PATIENT
  Age: 29 Year
  Sex: Female

DRUGS (3)
  1. LETAIRIS [Suspect]
     Active Substance: AMBRISENTAN
     Indication: PRODUCT USED FOR UNKNOWN INDICATION
     Dosage: 5 MG, UNK
     Route: 048
     Dates: start: 20101229
  2. VENTAVIS [Suspect]
     Active Substance: ILOPROST
  3. ADCIRCA [Suspect]
     Active Substance: TADALAFIL

REACTIONS (2)
  - Head discomfort [Unknown]
  - Fatigue [Unknown]
